FAERS Safety Report 7299283-2 (Version None)
Quarter: 2011Q1

REPORT INFORMATION
  Report Type: 
  Country: None (occurrence: None)
  Receive Date: 20110217
  Receipt Date: 20110208
  Transmission Date: 20110831
  Serious: Yes (Death)
  Sender: FDA-Public Use
  Company Number: US-ELI_LILLY_AND_COMPANY-US201101001395

PATIENT
  Sex: Male
  Weight: 97.506 kg

DRUGS (2)
  1. GEMZAR [Suspect]
     Dosage: 1900 MG, UNK
     Route: 042
     Dates: start: 20100804
  2. CARBOPLATIN [Concomitant]

REACTIONS (2)
  - CARDIO-RESPIRATORY ARREST [None]
  - NEOPLASM MALIGNANT [None]
